FAERS Safety Report 5865193-8 (Version None)
Quarter: 2008Q3

REPORT INFORMATION
  Report Type: 
  Country: None (occurrence: None)
  Receive Date: 20080829
  Receipt Date: 20080808
  Transmission Date: 20090109
  Serious: Yes (Hospitalization)
  Sender: FDA-Public Use
  Company Number: B0512461A

PATIENT
  Age: 61 Year
  Sex: Female
  Weight: 66 kg

DRUGS (8)
  1. ARIXTRA [Suspect]
     Indication: ACUTE CORONARY SYNDROME
     Dosage: 7.5MG PER DAY
     Route: 042
     Dates: start: 20070919, end: 20070919
  2. ASPEGIC 325 [Suspect]
     Indication: ACUTE CORONARY SYNDROME
     Route: 042
     Dates: start: 20070919, end: 20070919
  3. LOVENOX [Suspect]
     Indication: ACUTE CORONARY SYNDROME
     Dosage: 30MG PER DAY
     Route: 042
     Dates: start: 20070919, end: 20070919
  4. RISORDAN [Concomitant]
     Indication: ACUTE CORONARY SYNDROME
     Route: 042
     Dates: start: 20070919, end: 20070919
  5. NEXIUM [Concomitant]
     Indication: GASTRIC ULCER
     Route: 042
     Dates: start: 20070919, end: 20070919
  6. PERFALGAN [Concomitant]
     Indication: PAIN
     Dosage: 1G FOUR TIMES PER DAY
     Route: 042
     Dates: start: 20070919, end: 20070927
  7. LEVOTHYROX [Concomitant]
     Indication: HYPOTHYROIDISM
     Route: 048
  8. LANZOR [Concomitant]
     Route: 065

REACTIONS (4)
  - HAEMATEMESIS [None]
  - HAEMOGLOBIN DECREASED [None]
  - HELICOBACTER GASTRITIS [None]
  - OESOPHAGEAL HAEMORRHAGE [None]
